FAERS Safety Report 16848353 (Version 1)
Quarter: 2019Q3

REPORT INFORMATION
  Report Type: Report from Study
  Country: JP (occurrence: JP)
  Receive Date: 20190925
  Receipt Date: 20190925
  Transmission Date: 20191005
  Serious: Yes (Death, Other)
  Sender: FDA-Public Use
  Company Number: JP-ACCORD-155638

PATIENT

DRUGS (8)
  1. ETOPOSIDE. [Suspect]
     Active Substance: ETOPOSIDE
     Indication: BONE MARROW CONDITIONING REGIMEN
     Dosage: TWICE DAILY ON DAYS -8 TO -5
  2. URSODEOXYCHOLATE SODIUM/URSODEOXYCHOLIC ACID [Concomitant]
     Indication: PROPHYLAXIS
     Dosage: FROM DAY-7 ONWARD
  3. RANIMUSTINE [Suspect]
     Active Substance: RANIMUSTINE
     Indication: BONE MARROW CONDITIONING REGIMEN
     Dosage: ON DAY-9
  4. ACICLOVIR [Concomitant]
     Active Substance: ACYCLOVIR
     Indication: ANTIBIOTIC PROPHYLAXIS
     Dosage: DAY-3 TO DAY+14
  5. SULFAMETHOXAZOLE/TRIMETHOPRIM [Concomitant]
     Indication: ANTIBIOTIC PROPHYLAXIS
     Dosage: DAY-21 TO DAY-7
  6. RANIMUSTINE [Suspect]
     Active Substance: RANIMUSTINE
     Indication: BONE MARROW CONDITIONING REGIMEN
     Dosage: ON DAY-4
  7. CYCLOPHOSPHAMIDE/CYCLOPHOSPHAMIDE MONOHYDRATE [Suspect]
     Active Substance: CYCLOPHOSPHAMIDE
     Indication: BONE MARROW CONDITIONING REGIMEN
     Dosage: 50 MG/KG ON DAYS-3 AND-2
  8. CYTARABINE/CYTARABINE HYDROCHLORIDE/CYTARABINE OCFOSFATE [Suspect]
     Active Substance: CYTARABINE
     Indication: BONE MARROW CONDITIONING REGIMEN
     Dosage: 2.0 G/M2 TWICE DAILY ON DAYS-8 TO-5

REACTIONS (1)
  - Venoocclusive liver disease [Fatal]
